FAERS Safety Report 13381328 (Version 1)
Quarter: 2017Q1

REPORT INFORMATION
  Report Type: Spontaneous
  Country: US (occurrence: US)
  Receive Date: 20170329
  Receipt Date: 20170329
  Transmission Date: 20170429
  Serious: No
  Sender: FDA-Public Use
  Company Number: US-TEVA-675942USA

PATIENT
  Sex: Male

DRUGS (2)
  1. SUCRALFATE. [Suspect]
     Active Substance: SUCRALFATE
     Indication: GASTROINTESTINAL DISORDER
  2. SUCRALFATE. [Suspect]
     Active Substance: SUCRALFATE
     Indication: ULCER

REACTIONS (6)
  - Gastric pH decreased [Unknown]
  - Pain [Unknown]
  - Drug ineffective [Unknown]
  - Malaise [Unknown]
  - Product quality issue [Unknown]
  - Product substitution issue [Unknown]
